FAERS Safety Report 20466653 (Version 1)
Quarter: 2022Q1

REPORT INFORMATION
  Report Type: Report from Study
  Country: GB (occurrence: GB)
  Receive Date: 20220213
  Receipt Date: 20220213
  Transmission Date: 20220423
  Serious: Yes (Other)
  Sender: FDA-Public Use
  Company Number: GB-ABBVIE-22K-167-4272840-00

PATIENT
  Sex: Male

DRUGS (2)
  1. CARBIDOPA\LEVODOPA [Suspect]
     Active Substance: CARBIDOPA\LEVODOPA
     Indication: Product used for unknown indication
     Dosage: 20MG/5MG, MD 9.5MLS CR 2.6MLS ED 1.6MLS
     Route: 050
  2. CARBIDOPA\LEVODOPA [Suspect]
     Active Substance: CARBIDOPA\LEVODOPA
     Dosage: 20MG/5MG,MD 9.5MLS CR 2.5MLS ED 1.6MLS
     Route: 050

REACTIONS (6)
  - Renal cancer [Unknown]
  - Dyskinesia [Unknown]
  - SARS-CoV-2 test positive [Unknown]
  - Disorientation [Unknown]
  - Patient elopement [Unknown]
  - Malaise [Unknown]

NARRATIVE: CASE EVENT DATE: 20220101
